FAERS Safety Report 17950119 (Version 1)
Quarter: 2020Q2

REPORT INFORMATION
  Report Type: Spontaneous
  Country: DE (occurrence: DE)
  Receive Date: 20200626
  Receipt Date: 20200626
  Transmission Date: 20200714
  Serious: Yes (Hospitalization)
  Sender: FDA-Public Use
  Company Number: NVSC2020DE176736

PATIENT
  Age: 56 Year
  Sex: Female

DRUGS (1)
  1. AMOXICILLIN. [Suspect]
     Active Substance: AMOXICILLIN
     Indication: PRODUCT USED FOR UNKNOWN INDICATION
     Dosage: NK MG, NK
     Route: 048

REACTIONS (7)
  - Pyrexia [Unknown]
  - Periorbital oedema [Unknown]
  - Product administration error [Unknown]
  - Headache [Unknown]
  - Musculoskeletal pain [Unknown]
  - Face oedema [Unknown]
  - Pruritus [Unknown]
